FAERS Safety Report 8200119-3 (Version None)
Quarter: 2012Q1

REPORT INFORMATION
  Report Type: 
  Country: None (occurrence: None)
  Receive Date: 20120306
  Receipt Date: 20120223
  Transmission Date: 20120608
  Serious: Yes (Death)
  Sender: FDA-Public Use
  Company Number: 2012SP010583

PATIENT

DRUGS (1)
  1. IMPLANON [Suspect]
     Indication: PREGNANCY
     Dosage: TRPL
     Route: 064

REACTIONS (4)
  - STILLBIRTH [None]
  - PREGNANCY WITH IMPLANT CONTRACEPTIVE [None]
  - UMBILICAL CORD ABNORMALITY [None]
  - MATERNAL EXPOSURE DURING PREGNANCY [None]
